FAERS Safety Report 5953865-6 (Version None)
Quarter: 2008Q4

REPORT INFORMATION
  Report Type: 
  Country: None (occurrence: None)
  Receive Date: 20081114
  Receipt Date: 20081104
  Transmission Date: 20090506
  Serious: Yes (Other)
  Sender: FDA-Public Use
  Company Number: CA-ABBOTT-08P-028-0486147-00

PATIENT
  Sex: Female
  Weight: 54.026 kg

DRUGS (2)
  1. MAVIK [Suspect]
     Indication: DRUG USE FOR UNKNOWN INDICATION
     Route: 048
  2. MAVIK [Suspect]
     Route: 048
     Dates: start: 20081007

REACTIONS (1)
  - BLADDER DISORDER [None]
